FAERS Safety Report 21374233 (Version 1)
Quarter: 2022Q3

REPORT INFORMATION
  Report Type: Spontaneous
  Country: FR (occurrence: FR)
  Receive Date: 20220926
  Receipt Date: 20220926
  Transmission Date: 20221027
  Serious: Yes (Other)
  Sender: FDA-Public Use
  Company Number: FR-ROCHE-3174266

PATIENT

DRUGS (6)
  1. NERATINIB [Suspect]
     Active Substance: NERATINIB
     Indication: Malignant peritoneal neoplasm
     Dosage: 100 MG, DAILY
     Route: 048
     Dates: start: 20210428, end: 20220811
  2. NERATINIB [Suspect]
     Active Substance: NERATINIB
     Indication: Off label use
  3. CARBOPLATIN [Suspect]
     Active Substance: CARBOPLATIN
     Indication: Malignant peritoneal neoplasm
     Dosage: 290 MG, DAILY
     Route: 042
     Dates: start: 20211125, end: 20220413
  4. GEMCITABINE [Suspect]
     Active Substance: GEMCITABINE
     Indication: Malignant peritoneal neoplasm
     Dosage: 1550 MG, DAILY
     Route: 042
     Dates: start: 20211125, end: 20220413
  5. ATEZOLIZUMAB [Suspect]
     Active Substance: ATEZOLIZUMAB
     Indication: Malignant peritoneal neoplasm
     Dosage: UNK
     Route: 042
     Dates: start: 20211125, end: 20220721
  6. ESOMEPRAZOLE [Concomitant]
     Active Substance: ESOMEPRAZOLE
     Indication: Product used for unknown indication
     Dosage: 20 MG
     Route: 065
     Dates: start: 20220407

REACTIONS (3)
  - Hypothyroidism [Recovered/Resolved]
  - Product use in unapproved indication [Unknown]
  - Off label use [Unknown]

NARRATIVE: CASE EVENT DATE: 20220810
